FAERS Safety Report 6736040-7 (Version None)
Quarter: 2010Q2

REPORT INFORMATION
  Report Type: 
  Country: None (occurrence: None)
  Receive Date: 20100521
  Receipt Date: 20100512
  Transmission Date: 20101027
  Serious: Yes (Other)
  Sender: FDA-Public Use
  Company Number: US-BAYER-201015162NA

PATIENT
  Age: 41 Year
  Sex: Female
  Weight: 67 kg

DRUGS (17)
  1. MAGNEVIST [Suspect]
     Indication: NUCLEAR MAGNETIC RESONANCE IMAGING
     Dosage: TOTAL DAILY DOSE: 40 ML
     Route: 042
     Dates: start: 20060123, end: 20060123
  2. MAGNEVIST [Suspect]
     Dosage: TOTAL DAILY DOSE: 40 ML
     Dates: start: 20060120, end: 20060120
  3. OMNISCAN [Suspect]
     Indication: NUCLEAR MAGNETIC RESONANCE IMAGING
  4. OPTIMARK [Suspect]
     Indication: NUCLEAR MAGNETIC RESONANCE IMAGING
  5. MULTIHANCE [Suspect]
     Indication: NUCLEAR MAGNETIC RESONANCE IMAGING
  6. PROHANCE [Suspect]
     Indication: NUCLEAR MAGNETIC RESONANCE IMAGING
  7. UNSPECIFIED GADLINIUM-BASED CONTRAST AGENT [Suspect]
     Indication: NUCLEAR MAGNETIC RESONANCE IMAGING
     Dates: start: 20060101, end: 20060101
  8. PREDNISONE [Concomitant]
  9. PREMARIN [Concomitant]
  10. PRAVASTATIN [Concomitant]
  11. RENALCAPS [Concomitant]
     Indication: VITAMIN SUPPLEMENTATION
     Dosage: DOSE: 1 CAPSULE DAILY
  12. PROTONIX [Concomitant]
  13. ZEMPLAR [Concomitant]
     Indication: HYPERPARATHYROIDISM SECONDARY
     Dosage: DOSE: 2 MCG/DAY
  14. EPO [Concomitant]
     Indication: ANAEMIA
     Dates: start: 19950101
  15. IRON SUPPLEMENTS [Concomitant]
     Dates: start: 20090101
  16. ZETIA [Concomitant]
     Dates: start: 20040101, end: 20060101
  17. HEPARIN [Concomitant]
     Dates: start: 19860101

REACTIONS (13)
  - BONE PAIN [None]
  - BURNING SENSATION [None]
  - GAIT DISTURBANCE [None]
  - JOINT RANGE OF MOTION DECREASED [None]
  - JOINT SWELLING [None]
  - MUSCULOSKELETAL STIFFNESS [None]
  - NEPHROGENIC SYSTEMIC FIBROSIS [None]
  - OEDEMA PERIPHERAL [None]
  - PAIN IN EXTREMITY [None]
  - PEAU D'ORANGE [None]
  - SKIN HYPERTROPHY [None]
  - SKIN INDURATION [None]
  - SKIN TIGHTNESS [None]
